FAERS Safety Report 8888470 (Version 3)
Quarter: 2013Q2

REPORT INFORMATION
  Report Type: Report from Study
  Country: LB (occurrence: LB)
  Receive Date: 20121106
  Receipt Date: 20130528
  Transmission Date: 20140414
  Serious: Yes (Hospitalization, Other)
  Sender: FDA-Public Use
  Company Number: PHHY2012LB097099

PATIENT
  Age: 69 Year
  Sex: Male

DRUGS (12)
  1. TASIGNA [Suspect]
     Indication: CHRONIC MYELOID LEUKAEMIA
     Dosage: 4 DF, DAILY
     Route: 048
     Dates: start: 20121011, end: 20121025
  2. NAVOBAN [Suspect]
     Indication: ACUTE LEUKAEMIA
     Route: 042
  3. RUBICIN [Suspect]
     Indication: ACUTE MYELOID LEUKAEMIA
     Route: 042
  4. CYTOSAR-U [Suspect]
     Indication: ACUTE MYELOID LEUKAEMIA
     Route: 042
  5. SPRYCEL [Suspect]
     Dosage: 2 DF, DAILY
  6. LESCOL [Concomitant]
     Dosage: 1 DF, DAILY
     Route: 048
     Dates: start: 2005
  7. BETASERC [Concomitant]
     Dosage: 1 DF, DAILY
     Route: 048
  8. ASPIRINE [Concomitant]
     Dosage: 1 DF, DAILY
     Route: 048
     Dates: start: 1993
  9. KERLON [Concomitant]
     Dosage: 0.5 DF, Q12H
     Route: 048
     Dates: start: 2003
  10. LEXOTANIL [Concomitant]
     Dosage: 0.5 DF, Q12H
     Route: 048
     Dates: start: 2007
  11. BEDRANOL [Concomitant]
     Dosage: 0.5 DF, DAILY
     Dates: start: 2007
  12. CHEMOTHERAPEUTICS [Concomitant]

REACTIONS (4)
  - Chronic myeloid leukaemia transformation [Not Recovered/Not Resolved]
  - Neutropenia [Not Recovered/Not Resolved]
  - Thrombocytopenia [Not Recovered/Not Resolved]
  - Drug ineffective [Unknown]
